FAERS Safety Report 4733939-8 (Version None)
Quarter: 2005Q3

REPORT INFORMATION
  Report Type: 
  Country: None (occurrence: None)
  Receive Date: 20050721
  Receipt Date: 20050511
  Transmission Date: 20060218
  Serious: No
  Sender: FDA-Public Use
  Company Number: 2005SP000718

PATIENT
  Age: 56 Year
  Sex: Female
  Weight: 55.7924 kg

DRUGS (2)
  1. LUNESTA [Suspect]
     Dosage: 3 MG; 2 MG  : ORAL
     Route: 048
     Dates: start: 20050401
  2. LUNESTA [Suspect]
     Dosage: 3 MG; 2 MG  : ORAL
     Route: 048
     Dates: start: 20050510

REACTIONS (1)
  - DYSGEUSIA [None]
